FAERS Safety Report 8872042 (Version 1)
Quarter: 2012Q4

REPORT INFORMATION
  Report Type: 
  Country: US (occurrence: US)
  Receive Date: 20121023
  Receipt Date: 20121023
  Transmission Date: 20130627
  Serious: No
  Sender: FDA-Public Use
  Company Number: US-ASTELLAS-2012US004228

PATIENT
  Sex: Male

DRUGS (4)
  1. PROGRAF [Suspect]
     Indication: PRODUCT USED FOR UNKNOWN INDICATION
     Dosage: 5 mg in AM and 4 mg in PM
     Route: 048
  2. PROGRAF [Suspect]
     Dosage: 4 mg in AM and 4 mg in PM
     Route: 048
  3. PROGRAF [Suspect]
     Dosage: 4.5 mg, UID/QD
     Route: 048
  4. PROGRAF [Suspect]
     Dosage: 4.5 mg in AM and 4.5 mg in PM
     Route: 048

REACTIONS (2)
  - Drug dispensing error [Unknown]
  - Immunosuppressant drug level increased [Unknown]
